FAERS Safety Report 8555277-8 (Version None)
Quarter: 2012Q3

REPORT INFORMATION
  Report Type: 
  Country: None (occurrence: None)
  Receive Date: 20120731
  Receipt Date: 20110824
  Transmission Date: 20120928
  Serious: No
  Sender: FDA-Public Use
  Company Number: US-ASTRAZENECA-2011SE51259

PATIENT

DRUGS (3)
  1. THIAMIN HCL TAB [Suspect]
     Route: 065
  2. SEROQUEL XR [Suspect]
     Dosage: 300 MG TWO TABLETS AT BEDTIME
     Route: 048
  3. TRAZODONE HYDROCHLORIDE [Suspect]
     Dosage: 150 MG HALF TABLT AT BEDTIME, 150 MG TO 225 MG AT BED, 150 MG ONE AND HALF AT BED
     Route: 065

REACTIONS (2)
  - SCHIZOAFFECTIVE DISORDER [None]
  - HALLUCINATION, VISUAL [None]
